FAERS Safety Report 6906109-2 (Version None)
Quarter: 2010Q3

REPORT INFORMATION
  Report Type: 
  Country: None (occurrence: None)
  Receive Date: 20100802
  Receipt Date: 20100721
  Transmission Date: 20110219
  Serious: Yes (Hospitalization)
  Sender: FDA-Public Use
  Company Number: 7011865

PATIENT
  Age: 54 Year
  Sex: Male

DRUGS (3)
  1. REBIF [Suspect]
     Indication: MULTIPLE SCLEROSIS
     Dosage: 44, 3 IN 1 WK, SUBCUTANEOUS
     Route: 058
     Dates: start: 20091015
  2. LIPIDIL [Concomitant]
  3. EFIENT (PRASUGREL) [Concomitant]

REACTIONS (1)
  - ACUTE MYOCARDIAL INFARCTION [None]
